FAERS Safety Report 12837238 (Version 1)
Quarter: 2016Q4

REPORT INFORMATION
  Report Type: Spontaneous
  Country: US (occurrence: US)
  Receive Date: 20161009
  Receipt Date: 20161009
  Transmission Date: 20170207
  Serious: Yes (Other)
  Sender: FDA-Public Use
  Company Number: None

PATIENT
  Age: 74 Year
  Sex: Female
  Weight: 63.9 kg

DRUGS (20)
  1. FEXOFENADINE [Suspect]
     Active Substance: FEXOFENADINE\FEXOFENADINE HYDROCHLORIDE
     Indication: HYPERSENSITIVITY
     Dosage: ?          QUANTITY:1 TABLET(S);?
     Route: 048
     Dates: start: 20160930, end: 20161001
  2. MELATONIN [Concomitant]
     Active Substance: MELATONIN
  3. LISINOPRIL. [Concomitant]
     Active Substance: LISINOPRIL
  4. OD STEROID CREAMS [Concomitant]
  5. BUTTERBUR EXTRACT [Concomitant]
  6. FISH OIL [Concomitant]
     Active Substance: FISH OIL
  7. MAGNESIUM [Concomitant]
     Active Substance: MAGNESIUM
  8. CLONIDINE. [Concomitant]
     Active Substance: CLONIDINE
  9. LORATADINE. [Concomitant]
     Active Substance: LORATADINE
  10. UBIQUINOL [Suspect]
     Active Substance: UBIQUINOL
  11. LACTOBACILLUS RAMNOAUSA [Concomitant]
  12. STREPTOCOCCUS THERMOPHILUS [Concomitant]
  13. POSFRUCTOOLIGOSACHARIDES [Concomitant]
  14. STANDARDIZED OD [Concomitant]
  15. OMEGA-3 OD [Concomitant]
  16. LACTOBACILLUS ACIDOPHULUS [Concomitant]
  17. LACTOCOCCUS LACTIS [Concomitant]
  18. BIFIDOBACTERIUM LONGUM [Concomitant]
     Active Substance: BIFIDOBACTERIUM LONGUM
  19. LORAZEPAM. [Concomitant]
     Active Substance: LORAZEPAM
  20. NO PYRROLZIDINE ALKALOIDS [Concomitant]

REACTIONS (2)
  - Heart rate increased [None]
  - Hypertensive crisis [None]

NARRATIVE: CASE EVENT DATE: 20160930
